FAERS Safety Report 13773322 (Version 1)
Quarter: 2017Q3

REPORT INFORMATION
  Report Type: Spontaneous
  Country: FR (occurrence: FR)
  Receive Date: 20170720
  Receipt Date: 20170720
  Transmission Date: 20171127
  Serious: Yes (Other)
  Sender: FDA-Public Use
  Company Number: FR-TEVA-787665ROM

PATIENT
  Sex: Female

DRUGS (2)
  1. SPIRONOLACTONE TEVA 25 MG [Suspect]
     Active Substance: SPIRONOLACTONE
     Dosage: 1 DOSAGE FORMS DAILY; AT MIDDAY
     Dates: start: 2008
  2. CARDENSIEL [Concomitant]
     Active Substance: BISOPROLOL FUMARATE

REACTIONS (4)
  - Muscle spasms [Unknown]
  - Kidney infection [Unknown]
  - Renal failure [Unknown]
  - Fatigue [Unknown]
